FAERS Safety Report 10511253 (Version 1)
Quarter: 2014Q4

REPORT INFORMATION
  Report Type: Spontaneous
  Country: US (occurrence: US)
  Receive Date: 20141010
  Receipt Date: 20141010
  Transmission Date: 20150528
  Serious: No
  Sender: FDA-Public Use
  Company Number: US-BAYER-2014-150093

PATIENT
  Age: 47 Year
  Sex: Female

DRUGS (1)
  1. ALEVE [Suspect]
     Active Substance: NAPROXEN SODIUM
     Indication: BACK PAIN
     Dosage: 3 DF, PRN
     Route: 048

REACTIONS (2)
  - Incorrect dose administered [None]
  - Expired product administered [None]

NARRATIVE: CASE EVENT DATE: 20141008
